FAERS Safety Report 4820024-X (Version None)
Quarter: 2005Q4

REPORT INFORMATION
  Report Type: 
  Country: None (occurrence: None)
  Receive Date: 20051031
  Receipt Date: 20050812
  Transmission Date: 20060501
  Serious: No
  Sender: FDA-Public Use
  Company Number: 2005PV001157

PATIENT
  Age: 68 Year
  Sex: Male
  Weight: 92.5338 kg

DRUGS (11)
  1. SYMLIN [Suspect]
     Indication: DIABETES MELLITUS INSULIN-DEPENDENT
     Dosage: 15 MCG;TID;SC ; 30 MCG;TID;SC
     Route: 058
     Dates: start: 20050810
  2. SYMLIN [Suspect]
     Indication: DIABETES MELLITUS INSULIN-DEPENDENT
     Dosage: 15 MCG;TID;SC ; 30 MCG;TID;SC
     Route: 058
     Dates: start: 20050913
  3. INSULIN LISPRO [Concomitant]
  4. INSULIN GLARGINE [Concomitant]
  5. ATENOLOL [Concomitant]
  6. LEVOTHYROXINE SODIUM [Concomitant]
  7. FUROSEMIDE [Concomitant]
  8. SIMVASTATIN [Concomitant]
  9. ASPIRIN [Concomitant]
  10. CENTRUM SILVER [Concomitant]
  11. FOSINOPRIL [Concomitant]

REACTIONS (4)
  - BLOOD GLUCOSE INCREASED [None]
  - FEELING ABNORMAL [None]
  - HEART RATE DECREASED [None]
  - WEIGHT DECREASED [None]
